FAERS Safety Report 25477716 (Version 1)
Quarter: 2025Q2

REPORT INFORMATION
  Report Type: Spontaneous
  Country: AU (occurrence: AU)
  Receive Date: 20250625
  Receipt Date: 20250625
  Transmission Date: 20250716
  Serious: Yes (Hospitalization, Other)
  Sender: NOVARTIS
  Company Number: AU-002147023-NVSC2025AU097132

PATIENT
  Sex: Female

DRUGS (1)
  1. MAYZENT [Suspect]
     Active Substance: SIPONIMOD
     Indication: Multiple sclerosis
     Dosage: UNK, QD (MAINTENANCE DOSE OF 4 X 0.25MG)
     Route: 065

REACTIONS (4)
  - Adverse event [Unknown]
  - General physical health deterioration [Unknown]
  - Injury [Unknown]
  - Product availability issue [Unknown]
